FAERS Safety Report 8146424 (Version 2)
Quarter: 2012Q4

REPORT INFORMATION
  Report Type: Report from Study
  Country: US (occurrence: None)
  Receive Date: 20110909
  Receipt Date: 20120906
  Transmission Date: 20130627
  Serious: Yes (Hospitalization, Other)
  Sender: FDA-Public Use
  Company Number: AUR-APL-2011-04888

PATIENT
  Age: 70 Year
  Sex: Male
  Weight: 126 kg

DRUGS (6)
  1. METFORMIN [Suspect]
     Indication: DRUG USE FOR UNKNOWN INDICATION
  2. SUNITINIB MALATE [Suspect]
     Indication: ADRENAL CARCINOMA
     Route: 048
     Dates: start: 20110627, end: 20110724
  3. SUNITINIB MALATE [Suspect]
     Indication: ADRENAL CARCINOMA
     Dates: start: 20110808
  4. BEVACIZUMAB [Suspect]
     Indication: ADRENOCORTICAL CARCINOMA
     Dosage: over 90-30 min on days 1, 15 and 29
     Route: 042
     Dates: start: 20110627, end: 20110711
  5. BEVACIZUMAB [Suspect]
     Indication: ADRENOCORTICAL CARCINOMA
     Dates: start: 20110808
  6. DYAZIDE [Suspect]
     Indication: PRODUCT USED FOR UNKNOWN INDICATION

REACTIONS (4)
  - Dehydration [None]
  - Renal failure acute [None]
  - Hyperuricaemia [None]
  - Platelet count decreased [None]
